FAERS Safety Report 12789239 (Version 1)
Quarter: 2016Q3

REPORT INFORMATION
  Report Type: Spontaneous
  Country: CN (occurrence: CN)
  Receive Date: 20160928
  Receipt Date: 20160928
  Transmission Date: 20161109
  Serious: Yes (Other)
  Sender: FDA-Public Use
  Company Number: CN-CORDEN PHARMA LATINA S.P.A.-CN-2016COR000220

PATIENT
  Sex: Male

DRUGS (1)
  1. ETOPOSIDE. [Suspect]
     Active Substance: ETOPOSIDE
     Indication: HISTIOCYTOSIS HAEMATOPHAGIC
     Dosage: UNK, CUMULATIVE DOSE = 3520 MG/M^2

REACTIONS (1)
  - Acute promyelocytic leukaemia [Recovered/Resolved]
